FAERS Safety Report 5891102-1 (Version None)
Quarter: 2008Q3

REPORT INFORMATION
  Report Type: 
  Country: None (occurrence: None)
  Receive Date: 20080818
  Receipt Date: 20080414
  Transmission Date: 20090109
  Serious: No
  Sender: FDA-Public Use
  Company Number: 20084960

PATIENT

DRUGS (1)
  1. LIORESAL [Suspect]
     Indication: MUSCLE SPASTICITY
     Dosage: MCG, DAILY, INTRATHECAL
     Route: 037

REACTIONS (1)
  - WITHDRAWAL SYNDROME [None]
